FAERS Safety Report 18605860 (Version 2)
Quarter: 2021Q1

REPORT INFORMATION
  Report Type: Spontaneous
  Country: FR (occurrence: FR)
  Receive Date: 20201211
  Receipt Date: 20210101
  Transmission Date: 20210419
  Serious: Yes (Hospitalization, Other)
  Sender: FDA-Public Use
  Company Number: FR-TAKEDA-2020TUS055845

PATIENT
  Age: 20 Year
  Sex: Female

DRUGS (2)
  1. FIRAZYR [Suspect]
     Active Substance: ICATIBANT ACETATE
     Indication: HEREDITARY ANGIOEDEMA
     Dosage: 30 MILLIGRAM,10 INJECTION PER YEAR
     Route: 058
     Dates: start: 2015
  2. FIRAZYR [Suspect]
     Active Substance: ICATIBANT ACETATE
     Indication: HEREDITARY ANGIOEDEMA
     Dosage: 30 MILLIGRAM,10 INJECTION PER YEAR
     Route: 058
     Dates: start: 2015

REACTIONS (9)
  - Skin reaction [Unknown]
  - Rash [Unknown]
  - Intussusception [Recovered/Resolved]
  - Injection site pain [Recovered/Resolved]
  - Erythema [Unknown]
  - Product use issue [Unknown]
  - Fatigue [Unknown]
  - Seizure [Unknown]
  - Drug ineffective [Unknown]

NARRATIVE: CASE EVENT DATE: 2015
